FAERS Safety Report 26123678 (Version 2)
Quarter: 2025Q4

REPORT INFORMATION
  Report Type: Spontaneous
  Country: EU (occurrence: EU)
  Receive Date: 20251205
  Receipt Date: 20251214
  Transmission Date: 20260118
  Serious: Yes (Hospitalization)
  Sender: BOEHRINGER INGELHEIM
  Company Number: None

PATIENT
  Age: 73 Year
  Sex: Male

DRUGS (12)
  1. JARDIANCE [Suspect]
     Active Substance: EMPAGLIFLOZIN
     Indication: Type 2 diabetes mellitus
  2. JARDIANCE [Suspect]
     Active Substance: EMPAGLIFLOZIN
  3. JARDIANCE [Suspect]
     Active Substance: EMPAGLIFLOZIN
     Dosage: STRENGHT: 8 MG/5 MG/2,5 MG?DOSING: 1 TBL DAILY
  4. AMLODIPINE\INDAPAMIDE\PERINDOPRIL [Suspect]
     Active Substance: AMLODIPINE\INDAPAMIDE\PERINDOPRIL
     Indication: Hypertension
     Dosage: STRENGHT: 8 MG/5 MG/2,5 MG
  5. Solifenacin/tamsulozin Belupo 6 MG/0,4 MG [Concomitant]
     Indication: Product used for unknown indication
     Dosage: STRENGHT:  6 MG/0,4 MG
  6. Apaurin 2 MG [Concomitant]
     Indication: Product used for unknown indication
  7. Levetiracetam Accord 1000 MG [Concomitant]
     Indication: Product used for unknown indication
  8. ASPIRIN [Concomitant]
     Active Substance: ASPIRIN
     Indication: Product used for unknown indication
  9. Nolpaza 20 MG [Concomitant]
     Indication: Product used for unknown indication
  10. Gliclada 30 MG [Concomitant]
     Indication: Product used for unknown indication
  11. Cholib 145 MG/20 MG [Concomitant]
     Indication: Product used for unknown indication
     Dosage: STRENGHT: 145 MG/20 MG?IN THE EVENING
  12. Metamizol STADA 500 MG [Concomitant]
     Indication: Product used for unknown indication
     Dosage: IF NECESSARY (APPROX. 30 TABLETS IN 2 MONTHS)

REACTIONS (3)
  - Dehydration [Recovering/Resolving]
  - Malaise [Recovering/Resolving]
  - Hypotension [Recovering/Resolving]
